FAERS Safety Report 8515702-5 (Version None)
Quarter: 2012Q3

REPORT INFORMATION
  Report Type: 
  Country: None (occurrence: None)
  Receive Date: 20120717
  Receipt Date: 20120712
  Transmission Date: 20120928
  Serious: Yes (Other)
  Sender: FDA-Public Use
  Company Number: PHEH2012US013709

PATIENT
  Sex: Male

DRUGS (4)
  1. MATZIM LA [Concomitant]
     Dosage: 360 MG, UNK
  2. DIOVAN HCT [Suspect]
     Indication: HYPERTENSION
     Dosage: 1 DF (80/12.5) DAILY
     Route: 048
  3. AVODART [Concomitant]
     Dosage: 0.5 MG, UNK
  4. TAMSULOSIN HYDROCHLORIDE [Concomitant]
     Dosage: 4 MG, UNK

REACTIONS (7)
  - ANAEMIA MACROCYTIC [None]
  - BLOOD GLUCOSE INCREASED [None]
  - MYELODYSPLASTIC SYNDROME [None]
  - ANAEMIA [None]
  - NEUROPATHY PERIPHERAL [None]
  - LEUKOCYTOSIS [None]
  - BENIGN PROSTATIC HYPERPLASIA [None]
